FAERS Safety Report 13086457 (Version 3)
Quarter: 2017Q3

REPORT INFORMATION
  Report Type: Spontaneous
  Country: US (occurrence: US)
  Receive Date: 20170104
  Receipt Date: 20170919
  Transmission Date: 20171127
  Serious: No
  Sender: FDA-Public Use
  Company Number: US-ACTELION-A-US2016-147600

PATIENT
  Age: 54 Year
  Sex: Female

DRUGS (13)
  1. NASACORT [Concomitant]
     Active Substance: TRIAMCINOLONE ACETONIDE
  2. SYMBICORT [Concomitant]
     Active Substance: BUDESONIDE\FORMOTEROL FUMARATE DIHYDRATE
     Dosage: 160/4.5 MCG, 2 PUFFS BID
  3. POTASSIUM CHLORIDE. [Concomitant]
     Active Substance: POTASSIUM CHLORIDE
     Dosage: 20 MEQ, QD
  4. OPSUMIT [Suspect]
     Active Substance: MACITENTAN
     Indication: PULMONARY ARTERIAL HYPERTENSION
     Dosage: 10 MG, QD
     Route: 048
     Dates: start: 201611
  5. KLOR-CON [Concomitant]
     Active Substance: POTASSIUM CHLORIDE
  6. MAGNESIUM [Concomitant]
     Active Substance: MAGNESIUM
  7. FUROSEMIDE. [Concomitant]
     Active Substance: FUROSEMIDE
     Dosage: 40 MG, TID
  8. LISINOPRIL. [Concomitant]
     Active Substance: LISINOPRIL
     Dosage: 10 MG, QD
  9. ADCIRCA [Suspect]
     Active Substance: TADALAFIL
     Indication: PRODUCT USED FOR UNKNOWN INDICATION
     Dosage: 20 MG, BID
     Route: 065
     Dates: start: 201610
  10. ADCIRCA [Suspect]
     Active Substance: TADALAFIL
     Dosage: 40 MG, QD
     Route: 065
     Dates: start: 20170130
  11. OMEGA 3 [Concomitant]
     Active Substance: OMEGA-3 FATTY ACIDS
  12. ALBUTEROL. [Concomitant]
     Active Substance: ALBUTEROL
     Dosage: 90 MCG, 1 PUFF, PRN
  13. METFORMIN [Concomitant]
     Active Substance: METFORMIN HYDROCHLORIDE
     Dosage: 500 MG, QD

REACTIONS (10)
  - Flushing [Not Recovered/Not Resolved]
  - Weight decreased [Recovered/Resolved]
  - Nasal congestion [Not Recovered/Not Resolved]
  - Fluid retention [Not Recovered/Not Resolved]
  - Melanocytic naevus [Not Recovered/Not Resolved]
  - Vaginal haemorrhage [Unknown]
  - Paranasal sinus discomfort [Recovered/Resolved]
  - Myalgia [Not Recovered/Not Resolved]
  - Headache [Recovered/Resolved]
  - Endometrial thickening [Unknown]

NARRATIVE: CASE EVENT DATE: 201611
